FAERS Safety Report 8049453-0 (Version None)
Quarter: 2012Q1

REPORT INFORMATION
  Report Type: 
  Country: None (occurrence: None)
  Receive Date: 20120117
  Receipt Date: 20120117
  Transmission Date: 20120608
  Serious: Yes (Other)
  Sender: FDA-Public Use
  Company Number: US-PFIZER INC-2012007737

PATIENT
  Sex: Female
  Weight: 67 kg

DRUGS (5)
  1. CHANTIX [Suspect]
     Indication: SMOKING CESSATION THERAPY
     Dosage: DAILY
     Route: 048
     Dates: start: 20120107
  2. VYTORIN [Concomitant]
     Indication: BLOOD CHOLESTEROL ABNORMAL
     Dosage: 10/20MG DAILY
  3. VYTORIN [Concomitant]
     Indication: CEREBROVASCULAR ACCIDENT
  4. XANAX [Suspect]
     Indication: DEPRESSION
     Dosage: DAILY
     Route: 048
     Dates: start: 20120107, end: 20120110
  5. ASCORBIC ACID [Suspect]
     Dosage: UNK

REACTIONS (10)
  - HEARING IMPAIRED [None]
  - CONFUSIONAL STATE [None]
  - DIZZINESS [None]
  - HUNGER [None]
  - DELIRIUM [None]
  - EUPHORIC MOOD [None]
  - CHOKING [None]
  - NAUSEA [None]
  - SELF-INJURIOUS IDEATION [None]
  - BACK PAIN [None]
